FAERS Safety Report 5901534-0 (Version None)
Quarter: 2008Q3

REPORT INFORMATION
  Report Type: 
  Country: None (occurrence: None)
  Receive Date: 20080929
  Receipt Date: 20080918
  Transmission Date: 20090109
  Serious: Yes (Death, Other)
  Sender: FDA-Public Use
  Company Number: US-JNJFOC-20080905725

PATIENT
  Age: 16 Month
  Sex: Male

DRUGS (5)
  1. TRAMADOL HCL [Suspect]
     Indication: ACCIDENTAL DRUG INTAKE BY CHILD
     Route: 048
  2. OXYCODONE HCL [Suspect]
     Indication: ACCIDENTAL DRUG INTAKE BY CHILD
     Route: 048
  3. DIPHENHYDRAMINE HCL [Suspect]
     Indication: ACCIDENTAL DRUG INTAKE BY CHILD
     Route: 048
  4. NAPROXEN [Suspect]
     Indication: ACCIDENTAL DRUG INTAKE BY CHILD
     Route: 048
  5. CIMETIDINE [Suspect]
     Indication: ACCIDENTAL DRUG INTAKE BY CHILD
     Route: 048

REACTIONS (1)
  - ACCIDENTAL DRUG INTAKE BY CHILD [None]
